FAERS Safety Report 14929328 (Version 1)
Quarter: 2018Q2

REPORT INFORMATION
  Report Type: Report from Study
  Country: CO (occurrence: CO)
  Receive Date: 20180523
  Receipt Date: 20180523
  Transmission Date: 20180711
  Serious: Yes (Hospitalization)
  Sender: FDA-Public Use
  Company Number: CO-SA-2018SA138445

PATIENT
  Age: 50 Year
  Sex: Female

DRUGS (1)
  1. INSULIN GLARGINE [Suspect]
     Active Substance: INSULIN GLARGINE
     Indication: TYPE 2 DIABETES MELLITUS
     Dosage: 56 IU,QD
     Route: 058
     Dates: start: 201705

REACTIONS (3)
  - Incorrect dose administered [Unknown]
  - Depression [Unknown]
  - Blood glucose increased [Unknown]
